FAERS Safety Report 13420271 (Version 1)
Quarter: 2017Q2

REPORT INFORMATION
  Report Type: Spontaneous
  Country: FR (occurrence: FR)
  Receive Date: 20170407
  Receipt Date: 20170407
  Transmission Date: 20170830
  Serious: Yes (Other)
  Sender: FDA-Public Use
  Company Number: FR-ROCHE-1917468

PATIENT
  Age: 35 Year
  Sex: Female

DRUGS (4)
  1. METHOTREXATE. [Concomitant]
     Active Substance: METHOTREXATE
  2. ROACTEMRA [Suspect]
     Active Substance: TOCILIZUMAB
     Indication: RHEUMATOID ARTHRITIS
     Dosage: SINGLE INTAKE
     Route: 042
     Dates: start: 20170206, end: 20170206
  3. SPECIAFOLDINE [Concomitant]
     Active Substance: FOLIC ACID
  4. PARACETAMOL [Concomitant]
     Active Substance: ACETAMINOPHEN

REACTIONS (1)
  - Oral mucosa erosion [Recovered/Resolved]

NARRATIVE: CASE EVENT DATE: 20170211
